FAERS Safety Report 9826799 (Version 1)
Quarter: 2014Q1

REPORT INFORMATION
  Report Type: Spontaneous
  Country: US (occurrence: US)
  Receive Date: 20140117
  Receipt Date: 20140117
  Transmission Date: 20141002
  Serious: No
  Sender: FDA-Public Use
  Company Number: US-BIOGENIDEC-2014BI003810

PATIENT
  Age: 57 Year
  Sex: Female

DRUGS (13)
  1. TECFIDERA [Suspect]
     Indication: MULTIPLE SCLEROSIS
     Route: 048
     Dates: start: 20131016
  2. ADVAIR HFA [Concomitant]
  3. BACLOFEN [Concomitant]
  4. CLONAZEPAM [Concomitant]
  5. CYMBALTA [Concomitant]
  6. FENTANYL [Concomitant]
  7. LYRICA [Concomitant]
  8. MELOXICAM [Concomitant]
  9. OMEPRAZOLE [Concomitant]
  10. PROAIR HFA [Concomitant]
  11. SAPHRIS [Concomitant]
  12. SIMVASTATIN [Concomitant]
  13. VALACYCLOVIR [Concomitant]

REACTIONS (1)
  - Blister [Unknown]
